FAERS Safety Report 26006227 (Version 1)
Quarter: 2025Q4

REPORT INFORMATION
  Report Type: Spontaneous
  Country: US (occurrence: None)
  Receive Date: 20251105
  Receipt Date: 20251105
  Transmission Date: 20260117
  Serious: Yes (Hospitalization)
  Sender: FDA-CTU
  Company Number: None

PATIENT
  Sex: Female

DRUGS (2)
  1. RASUVO [Suspect]
     Active Substance: METHOTREXATE SODIUM
     Indication: Polyarthritis
     Dosage: 20 MG EVERY OTHER DAY SUBCUTANEOUS?
     Route: 058
     Dates: start: 20250919
  2. TERIPARATIDE [Concomitant]
     Active Substance: TERIPARATIDE

REACTIONS (1)
  - Coronary arterial stent insertion [None]
